FAERS Safety Report 24428165 (Version 1)
Quarter: 2024Q4

REPORT INFORMATION
  Report Type: Spontaneous
  Country: US (occurrence: US)
  Receive Date: 20241011
  Receipt Date: 20241011
  Transmission Date: 20250114
  Serious: Yes (Other)
  Sender: ABBVIE
  Company Number: US-ABBVIE-5958444

PATIENT
  Sex: Female

DRUGS (1)
  1. UPADACITINIB [Suspect]
     Active Substance: UPADACITINIB
     Indication: Sjogren^s syndrome
     Route: 048

REACTIONS (4)
  - Colectomy total [Unknown]
  - Product residue present [Unknown]
  - Abnormal faeces [Unknown]
  - Off label use [Unknown]
